FAERS Safety Report 20852997 (Version 1)
Quarter: 2022Q2

REPORT INFORMATION
  Report Type: Spontaneous
  Country: US (occurrence: None)
  Receive Date: 20220519
  Receipt Date: 20220519
  Transmission Date: 20220721
  Serious: Yes (Hospitalization)
  Sender: FDA-Public Use
  Company Number: None

PATIENT
  Sex: Female

DRUGS (1)
  1. TREPROSTINIL [Suspect]
     Active Substance: TREPROSTINIL
     Indication: Pulmonary arterial hypertension
     Dosage: OTHER QUANTITY : 28NG/KG/MIN;?OTHER FREQUENCY : 44ML/24HR;?
     Route: 042
     Dates: start: 20210215

REACTIONS (2)
  - Dyspnoea [None]
  - Abdominal pain [None]
